FAERS Safety Report 19919311 (Version 1)
Quarter: 2021Q4

REPORT INFORMATION
  Report Type: Spontaneous
  Country: CN (occurrence: CN)
  Receive Date: 20211004
  Receipt Date: 20211004
  Transmission Date: 20220303
  Serious: Yes (Other)
  Sender: FDA-Public Use
  Company Number: CN-BAXTER-2021BAX030610

PATIENT
  Age: 43 Year
  Sex: Female
  Weight: 60 kg

DRUGS (11)
  1. CYCLOPHOSPHAMIDE [Suspect]
     Active Substance: CYCLOPHOSPHAMIDE
     Indication: Symptomatic treatment
     Dosage: CYCLOPHOSPHAMIDE 0.8 G + SODIUM CHLORIDE INJECTION 250 ML
     Route: 041
     Dates: start: 20200110, end: 20200110
  2. CYCLOPHOSPHAMIDE [Suspect]
     Active Substance: CYCLOPHOSPHAMIDE
     Indication: Breast cancer female
  3. SODIUM CHLORIDE [Suspect]
     Active Substance: SODIUM CHLORIDE
     Indication: Medication dilution
     Dosage: DOCETAXEL INJECTION 120 MG + SODIUM CHLORIDE INJECTION 500 ML
     Route: 041
     Dates: start: 20200110
  4. SODIUM CHLORIDE [Suspect]
     Active Substance: SODIUM CHLORIDE
     Dosage: EPIRUBICIN HYDROCHLORIDE INJECTION 80 MG + SODIUM CHLORIDE INJECTION 100 ML
     Route: 041
     Dates: start: 20200110
  5. SODIUM CHLORIDE [Suspect]
     Active Substance: SODIUM CHLORIDE
     Dosage: CYCLOPHOSPHAMIDE 0.8 G + SODIUM CHLORIDE INJECTION 250 ML
     Route: 041
     Dates: start: 20200110
  6. EPIRUBICIN HYDROCHLORIDE [Suspect]
     Active Substance: EPIRUBICIN HYDROCHLORIDE
     Indication: Symptomatic treatment
     Dosage: EPIRUBICIN HYDROCHLORIDE INJECTION 80 MG + SODIUM CHLORIDE INJECTION 100 ML
     Route: 041
     Dates: start: 20200110, end: 20200110
  7. EPIRUBICIN HYDROCHLORIDE [Suspect]
     Active Substance: EPIRUBICIN HYDROCHLORIDE
     Indication: Breast cancer
  8. DOCETAXEL [Suspect]
     Active Substance: DOCETAXEL
     Indication: Symptomatic treatment
     Dosage: DOCETAXEL INJECTION 120 MG + SODIUM CHLORIDE INJECTION 500 ML
     Route: 041
     Dates: start: 20200110, end: 20200110
  9. DOCETAXEL [Suspect]
     Active Substance: DOCETAXEL
     Indication: Breast cancer female
  10. pegylated recombinant human granulocyte colony-stimulating Factor [Concomitant]
     Indication: White blood cell count decreased
     Route: 058
     Dates: start: 20200114
  11. THYMALFASIN [Concomitant]
     Active Substance: THYMALFASIN
     Indication: White blood cell count decreased
     Route: 058
     Dates: start: 20200114

REACTIONS (4)
  - Myelosuppression [Recovered/Resolved]
  - Gingival pain [Recovered/Resolved]
  - Oropharyngeal pain [Recovered/Resolved]
  - Pyrexia [Recovered/Resolved]

NARRATIVE: CASE EVENT DATE: 20200114
